FAERS Safety Report 18963578 (Version 3)
Quarter: 2022Q2

REPORT INFORMATION
  Report Type: Report from Study
  Country: US (occurrence: US)
  Receive Date: 20210303
  Receipt Date: 20220422
  Transmission Date: 20220721
  Serious: Yes (Other)
  Sender: FDA-Public Use
  Company Number: NVSC2021US047120

PATIENT
  Sex: Male
  Weight: 21 kg

DRUGS (1)
  1. KYMRIAH [Suspect]
     Active Substance: TISAGENLECLEUCEL
     Indication: Acute lymphocytic leukaemia
     Dosage: 31 ML, ONCE/SINGLE (3.1X10^6 CAR-POS)
     Route: 042
     Dates: start: 20200831

REACTIONS (1)
  - Acute lymphocytic leukaemia recurrent [Unknown]
